FAERS Safety Report 6934146-0 (Version None)
Quarter: 2010Q3

REPORT INFORMATION
  Report Type: 
  Country: None (occurrence: None)
  Receive Date: 20100820
  Receipt Date: 20100806
  Transmission Date: 20110219
  Serious: Yes (Other)
  Sender: FDA-Public Use
  Company Number: US-PFIZER INC-2010103930

PATIENT
  Sex: Female
  Weight: 63.492 kg

DRUGS (16)
  1. LIPITOR [Suspect]
     Indication: PROPHYLAXIS
     Dosage: 5 MG, DAILY
     Route: 048
  2. PRISTIQ [Suspect]
     Indication: DEPRESSION
     Dosage: 50 MG, DAILY
     Route: 048
     Dates: start: 20100101
  3. WARFARIN [Concomitant]
     Dosage: 6 MG, DAILY
  4. NAMENDA [Concomitant]
     Dosage: 10 MG, 2X/DAY
  5. LANOXIN [Concomitant]
     Dosage: 0.125 MG, 3X/WEEK
  6. BENICAR HCT [Concomitant]
     Dosage: 20/12.5 MG 1/2 TABLET DAILY
  7. EVISTA [Concomitant]
     Dosage: 60 MG, DAILY
  8. MULTIVIT [Concomitant]
     Dosage: UNK, DAILY
  9. LEVOTHYROXINE [Concomitant]
     Dosage: 100 UG, DAILY
  10. FUROSEMIDE [Concomitant]
     Dosage: 20 MG, DAILY
  11. POTASSIUM [Concomitant]
     Dosage: 10 MG, DAILY
  12. ADVAIR DISKUS 100/50 [Concomitant]
     Indication: ASTHMA
     Dosage: UNK
  13. CALCIUM [Concomitant]
     Dosage: UNK, DAILY
  14. FISH OIL [Concomitant]
     Dosage: UNK, DAILY
  15. VITAMIN D [Concomitant]
     Dosage: 1000 IU, DAILY
  16. PROVENTIL GENTLEHALER [Concomitant]
     Dosage: UNK, AS NEEDED

REACTIONS (4)
  - DEPRESSION [None]
  - HEADACHE [None]
  - INSOMNIA [None]
  - PSYCHOMOTOR HYPERACTIVITY [None]
